FAERS Safety Report 12196993 (Version 1)
Quarter: 2016Q1

REPORT INFORMATION
  Report Type: Spontaneous
  Country: US (occurrence: US)
  Receive Date: 20160321
  Receipt Date: 20160321
  Transmission Date: 20160526
  Serious: Yes (Hospitalization, Other)
  Sender: FDA-Public Use
  Company Number: US-INVAGEN PHARMACEUTICALS, INC.-1049403

PATIENT
  Age: 73 Year
  Sex: Female
  Weight: 47.73 kg

DRUGS (1)
  1. RALOXIFENE HYDROCHLORIDE. [Suspect]
     Active Substance: RALOXIFENE HYDROCHLORIDE
     Indication: OSTEOPOROSIS
     Route: 048

REACTIONS (4)
  - Gastric disorder [Unknown]
  - Restless legs syndrome [Unknown]
  - Decreased appetite [Unknown]
  - Rhinorrhoea [Unknown]
